FAERS Safety Report 22689850 (Version 4)
Quarter: 2023Q4

REPORT INFORMATION
  Report Type: Report from Study
  Country: ES (occurrence: ES)
  Receive Date: 20230711
  Receipt Date: 20231215
  Transmission Date: 20240110
  Serious: Yes (Life-Threatening)
  Sender: FDA-Public Use
  Company Number: ES-JNJFOC-20230712270

PATIENT
  Age: 49 Year
  Sex: Female
  Weight: 52 kg

DRUGS (38)
  1. SIMPONI [Suspect]
     Active Substance: GOLIMUMAB
     Indication: Colitis ulcerative
     Route: 058
     Dates: start: 20190906, end: 20200629
  2. SIMPONI [Suspect]
     Active Substance: GOLIMUMAB
     Dosage: (DATE OF LAST ADMINISTRATION WAS 05-OCT-2020).
     Route: 058
     Dates: start: 20200907
  3. PENTASA [Concomitant]
     Active Substance: MESALAMINE
     Dates: start: 201702, end: 202010
  4. CALCIFEDIOL [Concomitant]
     Active Substance: CALCIFEDIOL
     Indication: Vitamin D deficiency
     Dates: start: 20190828, end: 20191128
  5. CALCIFEDIOL [Concomitant]
     Active Substance: CALCIFEDIOL
     Dates: start: 20191129
  6. MESALAMINE [Concomitant]
     Active Substance: MESALAMINE
     Dates: start: 20200309, end: 202004
  7. MESALAMINE [Concomitant]
     Active Substance: MESALAMINE
     Dates: start: 20200504, end: 202006
  8. MESALAMINE [Concomitant]
     Active Substance: MESALAMINE
     Dates: start: 202006, end: 202010
  9. BECLOMETHASONE DIPROPIONATE [Concomitant]
     Active Substance: BECLOMETHASONE DIPROPIONATE
     Dates: start: 20200323, end: 20200330
  10. PREDNISONE [Concomitant]
     Active Substance: PREDNISONE
     Indication: Primary hyperthyroidism
     Dates: start: 20200330, end: 20200403
  11. PREDNISONE [Concomitant]
     Active Substance: PREDNISONE
     Dates: start: 20200404, end: 20200407
  12. PREDNISONE [Concomitant]
     Active Substance: PREDNISONE
     Dates: start: 20200408, end: 20200412
  13. PREDNISONE [Concomitant]
     Active Substance: PREDNISONE
     Dates: start: 20200413, end: 20200420
  14. PREDNISONE [Concomitant]
     Active Substance: PREDNISONE
     Dates: start: 20200824, end: 202009
  15. PREDNISONE [Concomitant]
     Active Substance: PREDNISONE
     Dates: start: 202009, end: 202010
  16. PREDNISONE [Concomitant]
     Active Substance: PREDNISONE
     Dates: start: 20220704, end: 20220714
  17. PREDNISONE [Concomitant]
     Active Substance: PREDNISONE
     Dates: start: 20220720, end: 20220803
  18. PREDNISONE [Concomitant]
     Active Substance: PREDNISONE
     Dates: start: 20220804, end: 20220825
  19. PREDNISONE [Concomitant]
     Active Substance: PREDNISONE
     Dates: start: 20220826, end: 20220901
  20. PREDNISONE [Concomitant]
     Active Substance: PREDNISONE
     Dates: start: 20220902, end: 20220907
  21. INTESTIFALK [Concomitant]
     Dates: start: 20200727, end: 20200823
  22. VEDOLIZUMAB [Concomitant]
     Active Substance: VEDOLIZUMAB
     Dosage: ONGOING
     Dates: start: 20201026
  23. PROPRANOLOL HYDROCHLORIDE [Concomitant]
     Active Substance: PROPRANOLOL HYDROCHLORIDE
     Indication: Primary hyperthyroidism
     Dates: start: 20200704, end: 20200719
  24. PROPRANOLOL HYDROCHLORIDE [Concomitant]
     Active Substance: PROPRANOLOL HYDROCHLORIDE
     Dates: start: 20200720, end: 20200803
  25. PROPRANOLOL HYDROCHLORIDE [Concomitant]
     Active Substance: PROPRANOLOL HYDROCHLORIDE
     Dates: start: 20200804, end: 20200825
  26. PROPRANOLOL HYDROCHLORIDE [Concomitant]
     Active Substance: PROPRANOLOL HYDROCHLORIDE
     Dates: start: 20220826, end: 202305
  27. METHIMAZOLE [Concomitant]
     Active Substance: METHIMAZOLE
     Indication: Primary hyperthyroidism
     Dates: start: 20220720, end: 20220727
  28. METHIMAZOLE [Concomitant]
     Active Substance: METHIMAZOLE
     Dates: start: 20220728, end: 20220825
  29. METHIMAZOLE [Concomitant]
     Active Substance: METHIMAZOLE
     Dates: start: 20220826, end: 20230223
  30. SODIUM IODIDE I-131 [Concomitant]
     Active Substance: SODIUM IODIDE I-131
     Dates: start: 20220825, end: 20220825
  31. DEXKETOPROFEN [Concomitant]
     Active Substance: DEXKETOPROFEN
     Indication: Surgery
     Dates: start: 20230221, end: 20230223
  32. ACETAMINOPHEN [Concomitant]
     Active Substance: ACETAMINOPHEN
     Indication: Hyperthyroidism
     Dates: start: 20230221, end: 20230222
  33. ACETAMINOPHEN [Concomitant]
     Active Substance: ACETAMINOPHEN
     Dates: start: 20230222, end: 20230223
  34. LEVOTHYROXINE SODIUM [Concomitant]
     Active Substance: LEVOTHYROXINE SODIUM
     Indication: Hyperthyroidism
     Dates: start: 20230221, end: 20230223
  35. LEVOTHYROXINE SODIUM [Concomitant]
     Active Substance: LEVOTHYROXINE SODIUM
     Indication: Primary hyperthyroidism
     Dates: start: 20230223, end: 20230524
  36. OMEPRAZOLE [Concomitant]
     Active Substance: OMEPRAZOLE
     Indication: Primary hyperthyroidism
     Dates: start: 20230221, end: 20230222
  37. IBUPROFEN [Concomitant]
     Active Substance: IBUPROFEN
     Indication: Primary hyperthyroidism
     Dates: start: 20230222, end: 20230223
  38. LEVOTHYROXINE SODIUM [Concomitant]
     Active Substance: LEVOTHYROXINE SODIUM
     Indication: Primary hyperthyroidism
     Dosage: ON GOING
     Dates: start: 20230525

REACTIONS (1)
  - Invasive breast carcinoma [Recovering/Resolving]

NARRATIVE: CASE EVENT DATE: 20230512
